FAERS Safety Report 8153307-9 (Version None)
Quarter: 2012Q1

REPORT INFORMATION
  Report Type: 
  Country: None (occurrence: None)
  Receive Date: 20120221
  Receipt Date: 20120208
  Transmission Date: 20120608
  Serious: Yes (Hospitalization)
  Sender: FDA-Public Use
  Company Number: FR-ELI_LILLY_AND_COMPANY-FR201202002192

PATIENT
  Sex: Female

DRUGS (8)
  1. ZYPREXA [Suspect]
     Indication: ANXIETY
     Dosage: 20 MG, QD
     Route: 048
     Dates: start: 20111129, end: 20111203
  2. BISOPROLOL FUMARATE [Concomitant]
     Dosage: 5 MG, UNK
  3. ATARAX [Concomitant]
     Indication: RESTLESSNESS
     Dosage: UNK
     Route: 048
     Dates: start: 20111118
  4. HALDOL [Concomitant]
     Indication: RESTLESSNESS
     Dosage: 5 MG, EVERY 6 HRS
     Dates: start: 20111118, end: 20111203
  5. ZYPREXA [Suspect]
     Dosage: 20 MG, QD
     Route: 048
     Dates: start: 20111206
  6. CATAPRES [Concomitant]
     Indication: RESTLESSNESS
     Dosage: UNK
     Dates: start: 20111118
  7. TERCIAN [Concomitant]
     Indication: ANXIETY
     Dosage: 25 DF, EVERY 6 HRS
     Dates: start: 20111129, end: 20111203
  8. XANAX [Concomitant]
     Indication: ANXIETY
     Dosage: UNK
     Dates: start: 20111129

REACTIONS (9)
  - HYPERTENSION [None]
  - OFF LABEL USE [None]
  - HYPERHIDROSIS [None]
  - NEUROLEPTIC MALIGNANT SYNDROME [None]
  - PYREXIA [None]
  - WHITE BLOOD CELL COUNT INCREASED [None]
  - TACHYPNOEA [None]
  - TREMOR [None]
  - MUSCLE RIGIDITY [None]
